FAERS Safety Report 10199285 (Version 1)
Quarter: 2014Q2

REPORT INFORMATION
  Report Type: Spontaneous
  Country: US (occurrence: US)
  Receive Date: 20140527
  Receipt Date: 20140527
  Transmission Date: 20141212
  Serious: No
  Sender: FDA-Public Use
  Company Number: US-NOVEN-13US008477

PATIENT
  Sex: Male

DRUGS (3)
  1. DAYTRANA [Suspect]
     Indication: PRODUCT USED FOR UNKNOWN INDICATION
     Dosage: THREE 10MG, QD,
     Route: 062
     Dates: start: 201311
  2. DAYTRANA [Suspect]
     Dosage: 10 MG, QD, FOR 1 WEEK
     Route: 062
     Dates: start: 201311, end: 201311
  3. DAYTRANA [Suspect]
     Dosage: TWO 10MG, QD, FOR 1 WEEK
     Route: 062
     Dates: start: 201311, end: 201311

REACTIONS (4)
  - Off label use [Not Recovered/Not Resolved]
  - Wrong technique in drug usage process [Not Recovered/Not Resolved]
  - Drug prescribing error [Not Recovered/Not Resolved]
  - No adverse event [None]
